FAERS Safety Report 17105766 (Version 1)
Quarter: 2019Q4

REPORT INFORMATION
  Report Type: Report from Study
  Country: CA (occurrence: CA)
  Receive Date: 20191203
  Receipt Date: 20191203
  Transmission Date: 20200122
  Serious: Yes (Other)
  Sender: FDA-Public Use
  Company Number: CA-BRISTOL-MYERS SQUIBB COMPANY-BMS-2017-119906

PATIENT
  Age: 32 Year
  Sex: Female

DRUGS (1)
  1. ABATACEPT [Suspect]
     Active Substance: ABATACEPT
     Indication: RHEUMATOID ARTHRITIS
     Dosage: 1000 MG, Q4WK
     Route: 042
     Dates: start: 20160902

REACTIONS (5)
  - Adverse event [Unknown]
  - Headache [Unknown]
  - Influenza like illness [Unknown]
  - Thermal burn [Recovering/Resolving]
  - Burn infection [Recovering/Resolving]

NARRATIVE: CASE EVENT DATE: 20190618
